FAERS Safety Report 5985132-9 (Version None)
Quarter: 2008Q4

REPORT INFORMATION
  Report Type: 
  Country: None (occurrence: None)
  Receive Date: 20081208
  Receipt Date: 20081202
  Transmission Date: 20090506
  Serious: Yes (Other)
  Sender: FDA-Public Use
  Company Number: US-GENENTECH-272710

PATIENT
  Sex: Female
  Weight: 49.887 kg

DRUGS (1)
  1. AVASTIN [Suspect]
     Indication: COLON CANCER
     Dosage: 855 MG, Q21D
     Route: 042
     Dates: start: 20080409, end: 20080818

REACTIONS (2)
  - DYSARTHRIA [None]
  - PARALYSIS [None]
